FAERS Safety Report 5429958-9 (Version None)
Quarter: 2007Q3

REPORT INFORMATION
  Report Type: 
  Country: None (occurrence: None)
  Receive Date: 20070829
  Receipt Date: 20070829
  Transmission Date: 20080115
  Serious: No
  Sender: FDA-Public Use
  Company Number: US-BOEHRINGER INGELHEIM PHARMACEUTICALS, INC.-2007-BP-04387BP

PATIENT
  Age: 77 Year
  Sex: Female

DRUGS (3)
  1. MICARDIS [Suspect]
     Indication: HYPERTENSION
     Route: 048
     Dates: start: 20030901
  2. PROTONIX [Concomitant]
  3. PRESER VISION [Concomitant]
     Indication: VITAMIN SUPPLEMENTATION

REACTIONS (2)
  - ACARODERMATITIS [None]
  - PRURITUS GENERALISED [None]
